FAERS Safety Report 8021910-2 (Version None)
Quarter: 2011Q4

REPORT INFORMATION
  Report Type: 
  Country: None (occurrence: None)
  Receive Date: 20111229
  Receipt Date: 20111222
  Transmission Date: 20120403
  Serious: Yes (Other)
  Sender: FDA-Public Use
  Company Number: 1146837

PATIENT
  Age: 64 Year
  Sex: Female
  Weight: 42.1845 kg

DRUGS (2)
  1. PACLITAXEL [Concomitant]
  2. CARBOPLATIN [Suspect]
     Indication: ENDOMETRIAL CANCER
     Dosage: 400 MG MILLIGRAM(S),, INTRAVENOUS(NOT OTHERWISE SPECIFIED)
     Route: 042
     Dates: start: 20110624

REACTIONS (6)
  - FLUSHING [None]
  - ERYTHEMA [None]
  - DYSPNOEA [None]
  - ABDOMINAL PAIN [None]
  - MUSCLE SPASMS [None]
  - PRURITUS [None]
